FAERS Safety Report 23328000 (Version 1)
Quarter: 2023Q4

REPORT INFORMATION
  Report Type: Spontaneous
  Country: US (occurrence: None)
  Receive Date: 20231221
  Receipt Date: 20231221
  Transmission Date: 20240110
  Serious: Yes (Life-Threatening, Other)
  Sender: FDA-Public Use
  Company Number: None

PATIENT
  Age: 23 Year
  Sex: Male
  Weight: 76.5 kg

DRUGS (5)
  1. ZEPOSIA [Suspect]
     Active Substance: OZANIMOD HYDROCHLORIDE
     Indication: Colitis ulcerative
     Dosage: OTHER QUANTITY : 1 CAPSULE(S);?FREQUENCY : DAILY;?
     Route: 048
     Dates: start: 20231116, end: 20231213
  2. HERBALS\TURMERIC [Concomitant]
     Active Substance: HERBALS\TURMERIC
  3. GINGER [Concomitant]
     Active Substance: GINGER
  4. VITAMIN D/C/E [Concomitant]
  5. beet root [Concomitant]

REACTIONS (7)
  - Illness [None]
  - Haemorrhage [None]
  - Abdominal distension [None]
  - Diarrhoea [None]
  - Faeces discoloured [None]
  - Gastrointestinal inflammation [None]
  - Decreased appetite [None]

NARRATIVE: CASE EVENT DATE: 20231210
